FAERS Safety Report 21513639 (Version 6)
Quarter: 2022Q4

REPORT INFORMATION
  Report Type: Report from Study
  Country: US (occurrence: None)
  Receive Date: 20221027
  Receipt Date: 20221215
  Transmission Date: 20230112
  Serious: Yes (Hospitalization)
  Sender: FDA-Public Use
  Company Number: US-ROCHE-3205966

PATIENT
  Age: 57 Year
  Sex: Female

DRUGS (2)
  1. ATEZOLIZUMAB [Suspect]
     Active Substance: ATEZOLIZUMAB
     Indication: Endometrial cancer
     Dosage: DOSAGE OF 1680 MG ON DAY 1 OF EACH 28-DAY CYCLE
     Route: 041
  2. IPATASERTIB [Suspect]
     Active Substance: IPATASERTIB
     Indication: Endometrial cancer
     Dosage: DOSAGE OF 400 MG ONCE DAILY FOR 21 DAYS OF EACH 28-DAY CYCLE.
     Route: 048

REACTIONS (4)
  - Cognitive disorder [Recovering/Resolving]
  - Anaemia [Recovering/Resolving]
  - Hyponatraemia [Recovering/Resolving]
  - Hypomagnesaemia [Recovering/Resolving]

NARRATIVE: CASE EVENT DATE: 20221117
